FAERS Safety Report 5604318-6 (Version None)
Quarter: 2008Q1

REPORT INFORMATION
  Report Type: 
  Country: None (occurrence: None)
  Receive Date: 20080128
  Receipt Date: 20080122
  Transmission Date: 20080703
  Serious: Yes (Hospitalization)
  Sender: FDA-Public Use
  Company Number: A0704616A

PATIENT
  Age: 42 Year
  Sex: Male

DRUGS (3)
  1. PAXIL [Suspect]
     Indication: PANIC DISORDER
     Dosage: 20MG PER DAY
     Route: 048
     Dates: start: 19980701, end: 20070601
  2. PAROXETINE [Suspect]
     Indication: PANIC DISORDER
     Dosage: 20MG PER DAY
     Route: 048
     Dates: start: 20070601, end: 20071201
  3. NO CONCURRENT MEDICATION [Concomitant]

REACTIONS (1)
  - ANOGENITAL WARTS [None]
